FAERS Safety Report 4853243-7 (Version None)
Quarter: 2005Q4

REPORT INFORMATION
  Report Type: 
  Country: None (occurrence: None)
  Receive Date: 20051212
  Receipt Date: 20051130
  Transmission Date: 20060501
  Serious: Yes (Hospitalization)
  Sender: FDA-Public Use
  Company Number: 430040M05USA

PATIENT
  Age: 57 Year
  Sex: Female
  Weight: 73.9363 kg

DRUGS (13)
  1. NOVANTRONE [Suspect]
     Indication: MULTIPLE SCLEROSIS
     Dosage: 12 MG/M2, 1 IN 3 MONTHS
     Dates: start: 20021021, end: 20050203
  2. FOSAMAX [Concomitant]
  3. PREDNISONE [Concomitant]
  4. PLAQUENIL [Concomitant]
  5. ZOLOFT [Concomitant]
  6. PREMPRO 14/14 [Concomitant]
  7. PROCARDIA XL [Concomitant]
  8. BACLOFEN [Concomitant]
  9. FOLIC ACID [Concomitant]
  10. CALTRATE (CALCIUM CARBONATE) [Concomitant]
  11. VITAMIN E (TOCOPHEROL/00110501/) [Concomitant]
  12. PROVIGIL [Concomitant]
  13. MACROBID [Concomitant]

REACTIONS (1)
  - BREAST CANCER FEMALE [None]
